FAERS Safety Report 10841629 (Version 2)
Quarter: 2015Q1

REPORT INFORMATION
  Report Type: Spontaneous
  Country: US (occurrence: US)
  Receive Date: 20150220
  Receipt Date: 20150225
  Transmission Date: 20150721
  Serious: Yes (Hospitalization, Other)
  Sender: FDA-Public Use
  Company Number: US-TAKEDA-2015MPI000652

PATIENT
  Sex: Male
  Weight: 68.27 kg

DRUGS (13)
  1. VELCADE [Suspect]
     Active Substance: BORTEZOMIB
     Indication: AMYLOIDOSIS
     Dosage: 2.9 MG, UNK
     Route: 058
     Dates: start: 2013
  2. VELCADE [Suspect]
     Active Substance: BORTEZOMIB
     Dosage: 2.0 MG, UNK
     Route: 058
  3. LISINOPRIL. [Concomitant]
     Active Substance: LISINOPRIL
     Dosage: 10 MG, UNK
  4. THYROID [Concomitant]
     Active Substance: LEVOTHYROXINE\LIOTHYRONINE
     Dosage: 13 UNK, UNK
  5. OCUVITE [Concomitant]
     Active Substance: VITAMINS
  6. VELCADE [Suspect]
     Active Substance: BORTEZOMIB
     Dosage: 2.5 MG, UNK
     Route: 058
     Dates: start: 201401
  7. NEXIUM [Concomitant]
     Active Substance: ESOMEPRAZOLE MAGNESIUM
     Dosage: 20 MG, UNK
  8. SIMVASTATIN. [Concomitant]
     Active Substance: SIMVASTATIN
     Dosage: 20 MG, QOD
  9. SODIUM BICARBONATE. [Concomitant]
     Active Substance: SODIUM BICARBONATE
     Dosage: 325 MG, UNK
  10. ULORIC [Concomitant]
     Active Substance: FEBUXOSTAT
     Dosage: 20 MG, UNK
  11. IRON [Concomitant]
     Active Substance: IRON
     Dosage: 65 MG, UNK
  12. VITAMIN B12 [Concomitant]
     Active Substance: CYANOCOBALAMIN
     Dosage: 1000 MG, UNK
  13. VITAMIN D                          /00107901/ [Concomitant]
     Active Substance: ERGOCALCIFEROL

REACTIONS (3)
  - Product use issue [Unknown]
  - Ejection fraction decreased [Unknown]
  - Cardiomyopathy [Unknown]
